FAERS Safety Report 24711358 (Version 2)
Quarter: 2025Q1

REPORT INFORMATION
  Report Type: Spontaneous
  Country: BR (occurrence: BR)
  Receive Date: 20241209
  Receipt Date: 20250108
  Transmission Date: 20250408
  Serious: Yes (Other)
  Sender: Phathom Pharmaceuticals
  Company Number: BR-PHATHOM PHARMACEUTICALS INC.-2024PHT01420

PATIENT
  Sex: Female
  Weight: 72 kg

DRUGS (2)
  1. VONOPRAZAN FUMARATE [Suspect]
     Active Substance: VONOPRAZAN FUMARATE
     Indication: Gastrointestinal disorder prophylaxis
     Dosage: 10 MG, 1X/DAY
     Route: 048
  2. VONOPRAZAN FUMARATE [Suspect]
     Active Substance: VONOPRAZAN FUMARATE
     Indication: Gastrooesophageal reflux disease

REACTIONS (10)
  - Arrhythmia [Unknown]
  - Rash macular [Unknown]
  - Pruritus [Unknown]
  - Lip swelling [Unknown]
  - Eye swelling [Unknown]
  - Ear swelling [Unknown]
  - Peripheral swelling [Unknown]
  - Product use in unapproved indication [Unknown]
  - Throat irritation [Unknown]
  - Drug hypersensitivity [Unknown]
